FAERS Safety Report 6524702-6 (Version None)
Quarter: 2009Q4

REPORT INFORMATION
  Report Type: 
  Country: None (occurrence: None)
  Receive Date: 20091231
  Receipt Date: 20091231
  Transmission Date: 20100525
  Serious: Yes (Hospitalization)
  Sender: FDA-Public Use
  Company Number: None

PATIENT
  Age: 28 Year
  Sex: Male

DRUGS (1)
  1. SERTRALINE HCL [Suspect]
     Indication: DEPRESSION
     Dosage: 50 MG EVERY DAY PO
     Route: 048
     Dates: start: 20091225, end: 20091225

REACTIONS (3)
  - DYSPHAGIA [None]
  - RASH PRURITIC [None]
  - URTICARIA [None]
